FAERS Safety Report 25414746 (Version 3)
Quarter: 2025Q4

REPORT INFORMATION
  Report Type: Report from Study
  Country: MX (occurrence: MX)
  Receive Date: 20250609
  Receipt Date: 20251009
  Transmission Date: 20260117
  Serious: Yes (Other)
  Sender: DAIICHI
  Company Number: MX-AstraZeneca-CH-00881981A

PATIENT
  Age: 65 Year
  Sex: Female
  Weight: 53 kg

DRUGS (6)
  1. ENHERTU [Suspect]
     Active Substance: FAM-TRASTUZUMAB DERUXTECAN-NXKI
     Indication: HER2 positive breast cancer
     Dosage: 5.4 MG, ONCE EVERY 3 WK
     Route: 042
     Dates: start: 20241017
  2. ENHERTU [Suspect]
     Active Substance: FAM-TRASTUZUMAB DERUXTECAN-NXKI
     Dosage: 5.4 MG, ONCE EVERY 3 WK
     Route: 042
     Dates: start: 20250917, end: 20250917
  3. EXEMESTANE [Concomitant]
     Active Substance: EXEMESTANE
     Indication: Product used for unknown indication
     Dosage: 25 MG, QD
     Route: 065
  4. TELMISARTAN [Concomitant]
     Active Substance: TELMISARTAN
     Indication: Hypertension
     Dosage: 80 MG
     Route: 065
     Dates: start: 202412
  5. TELMISARTAN [Concomitant]
     Active Substance: TELMISARTAN
     Dosage: 40 MG
     Route: 065
     Dates: start: 202501
  6. SERETIDE [Concomitant]
     Active Substance: FLUTICASONE PROPIONATE\SALMETEROL XINAFOATE
     Indication: Product used for unknown indication
     Dosage: UNK UNK, ONCE EVERY 12HR
     Route: 065

REACTIONS (19)
  - Enterocolitis [Recovered/Resolved]
  - Colitis [Recovered/Resolved]
  - Pulmonary fibrosis [Unknown]
  - Platelet count decreased [Recovering/Resolving]
  - Fatigue [Recovered/Resolved]
  - Haemoglobin decreased [Recovering/Resolving]
  - Blood pressure decreased [Recovering/Resolving]
  - Nausea [Unknown]
  - Dyspepsia [Unknown]
  - Weight decreased [Unknown]
  - Dizziness [Unknown]
  - Stomatitis [Unknown]
  - Fatigue [Recovered/Resolved]
  - Hypersomnia [Recovered/Resolved]
  - Somnolence [Unknown]
  - Therapeutic product effect prolonged [Unknown]
  - Abdominal pain upper [Recovered/Resolved]
  - Dyschezia [Recovered/Resolved]
  - Toxicity to various agents [Unknown]

NARRATIVE: CASE EVENT DATE: 20241201
